FAERS Safety Report 4814648-3 (Version None)
Quarter: 2005Q4

REPORT INFORMATION
  Report Type: 
  Country: None (occurrence: None)
  Receive Date: 20051028
  Receipt Date: 20051023
  Transmission Date: 20060501
  Serious: Yes (Hospitalization)
  Sender: FDA-Public Use
  Company Number: GB-GLAXOSMITHKLINE-B0398043A

PATIENT
  Age: 69 Year
  Sex: Female

DRUGS (8)
  1. DIGOXIN [Suspect]
     Dosage: 250MCG PER DAY
     Route: 048
     Dates: end: 20050929
  2. COLCHICINE [Suspect]
     Indication: GOUT
     Dosage: 500MCG THREE TIMES PER DAY
     Route: 048
     Dates: start: 20050819, end: 20050909
  3. FUROSEMIDE [Concomitant]
     Dosage: 60MG PER DAY
     Route: 048
  4. SIMVASTATIN [Concomitant]
     Dosage: 40MG PER DAY
     Route: 048
  5. WARFARIN [Concomitant]
     Route: 048
  6. RAMIPRIL [Concomitant]
     Dosage: 10MG PER DAY
     Route: 048
  7. SPIRONOLACTONE [Concomitant]
     Dosage: 25MG PER DAY
     Route: 048
     Dates: start: 20050907, end: 20050923
  8. SPIRONOLACTONE [Concomitant]
     Dates: start: 20050923

REACTIONS (6)
  - DIZZINESS [None]
  - DRUG INTERACTION [None]
  - FATIGUE [None]
  - NAUSEA [None]
  - RENAL FAILURE ACUTE [None]
  - VISION BLURRED [None]
